FAERS Safety Report 6755676-0 (Version None)
Quarter: 2010Q2

REPORT INFORMATION
  Report Type: 
  Country: None (occurrence: None)
  Receive Date: 20100604
  Receipt Date: 20100526
  Transmission Date: 20101027
  Serious: Yes (Hospitalization, Other)
  Sender: FDA-Public Use
  Company Number: US-BAYER-201023944NA

PATIENT
  Age: 31 Year
  Sex: Female

DRUGS (1)
  1. MIRENA [Suspect]
     Indication: CONTRACEPTION
     Dosage: FREQUENCY CONTINUOUS
     Route: 015
     Dates: start: 20091228, end: 20100525

REACTIONS (4)
  - ECTOPIC PREGNANCY [None]
  - MENORRHAGIA [None]
  - PELVIC PAIN [None]
  - VAGINAL HAEMORRHAGE [None]
